FAERS Safety Report 7781082-6 (Version None)
Quarter: 2011Q3

REPORT INFORMATION
  Report Type: 
  Country: None (occurrence: None)
  Receive Date: 20110927
  Receipt Date: 20110922
  Transmission Date: 20111222
  Serious: Yes (Life-Threatening)
  Sender: FDA-Public Use
  Company Number: PHHY2011US48554

PATIENT
  Age: 58 Year
  Sex: Female

DRUGS (1)
  1. FANAPT [Suspect]
     Indication: SCHIZOPHRENIA
     Dosage: 3 MG, BID,SPLITS 6 MG TABLET
     Route: 048
     Dates: start: 20110501, end: 20110601

REACTIONS (10)
  - COUGH [None]
  - DECREASED ACTIVITY [None]
  - HEART RATE INCREASED [None]
  - HYPERHIDROSIS [None]
  - BLOOD PRESSURE INCREASED [None]
  - DIAPHRAGMATIC DISORDER [None]
  - MICTURITION URGENCY [None]
  - WRONG TECHNIQUE IN DRUG USAGE PROCESS [None]
  - THROAT TIGHTNESS [None]
  - DYSPNOEA [None]
